FAERS Safety Report 6970592-7 (Version None)
Quarter: 2010Q3

REPORT INFORMATION
  Report Type: 
  Country: None (occurrence: None)
  Receive Date: 20100908
  Receipt Date: 20100826
  Transmission Date: 20110219
  Serious: Yes (Other)
  Sender: FDA-Public Use
  Company Number: PHHY2010US48412

PATIENT
  Sex: Female
  Weight: 72 kg

DRUGS (2)
  1. DIOVAN [Suspect]
     Indication: HYPERTENSION
     Dosage: 160 MG, QD
     Route: 048
     Dates: start: 20100407, end: 20100613
  2. SYNTHROID [Concomitant]

REACTIONS (4)
  - ALOPECIA [None]
  - DISCOMFORT [None]
  - HYPOTHYROIDISM [None]
  - THYROID DISORDER [None]
